FAERS Safety Report 4393140-7 (Version None)
Quarter: 2004Q3

REPORT INFORMATION
  Report Type: 
  Country: None (occurrence: None)
  Receive Date: 20040708
  Receipt Date: 20040504
  Transmission Date: 20050211
  Serious: Yes (Life-Threatening)
  Sender: FDA-Public Use
  Company Number: PHHO2004CA06544

PATIENT
  Age: 65 Year
  Sex: Female
  Weight: 68 kg

DRUGS (4)
  1. CLOZARIL [Suspect]
     Indication: SCHIZOPHRENIA
     Dosage: 325 MG, QD
     Route: 048
     Dates: start: 20040318, end: 20040504
  2. QUETIAPINE [Concomitant]
  3. LAMOTRIGINE [Concomitant]
  4. LOXAPINE [Concomitant]

REACTIONS (4)
  - AGRANULOCYTOSIS [None]
  - CELLULITIS [None]
  - LEUKOPENIA [None]
  - PYREXIA [None]
